FAERS Safety Report 6772972-1 (Version None)
Quarter: 2010Q2

REPORT INFORMATION
  Report Type: 
  Country: None (occurrence: None)
  Receive Date: 20100616
  Receipt Date: 20100506
  Transmission Date: 20101027
  Serious: Yes (Death, Life-Threatening, Other)
  Sender: FDA-Public Use
  Company Number: US-BAXTER-2010BH000838

PATIENT
  Age: 35 Year
  Sex: Female
  Weight: 142 kg

DRUGS (8)
  1. HEPARIN SODIUM [Suspect]
     Indication: HAEMODIALYSIS
     Route: 042
     Dates: start: 20080113, end: 20080125
  2. POTASSIUM CHLORIDE SODIUM CHLORIDE GLUCOSE [Concomitant]
     Indication: DRUG USE FOR UNKNOWN INDICATION
     Route: 065
  3. COMBIVENT                               /GFR/ [Concomitant]
     Indication: DRUG USE FOR UNKNOWN INDICATION
     Route: 065
  4. DAPTOMYCIN [Concomitant]
     Indication: DRUG USE FOR UNKNOWN INDICATION
     Route: 065
  5. INSULIN                                 /CZE/ [Concomitant]
     Indication: DRUG USE FOR UNKNOWN INDICATION
     Route: 065
  6. MULTI-VITAMINS [Concomitant]
     Indication: DRUG USE FOR UNKNOWN INDICATION
     Route: 065
  7. ZITHROMAX [Concomitant]
     Indication: DRUG USE FOR UNKNOWN INDICATION
     Route: 065
  8. COUGH SUPRESSANT [Concomitant]
     Indication: DRUG USE FOR UNKNOWN INDICATION
     Route: 065

REACTIONS (14)
  - ACUTE RESPIRATORY DISTRESS SYNDROME [None]
  - ACUTE RESPIRATORY FAILURE [None]
  - AMMONIA INCREASED [None]
  - CARDIAC ARREST [None]
  - CHOLESTASIS [None]
  - ENTEROCOCCAL BACTERAEMIA [None]
  - ESCHERICHIA URINARY TRACT INFECTION [None]
  - MALNUTRITION [None]
  - MENTAL STATUS CHANGES [None]
  - SEPSIS [None]
  - SEPTIC SHOCK [None]
  - SKIN DISORDER [None]
  - SYSTEMIC INFLAMMATORY RESPONSE SYNDROME [None]
  - SYSTEMIC LUPUS ERYTHEMATOSUS [None]
